FAERS Safety Report 8184225-8 (Version None)
Quarter: 2012Q1

REPORT INFORMATION
  Report Type: 
  Country: None (occurrence: None)
  Receive Date: 20120305
  Receipt Date: 20120229
  Transmission Date: 20120608
  Serious: No
  Sender: FDA-Public Use
  Company Number: US-PFIZER INC-2012055876

PATIENT
  Sex: Male
  Weight: 72.6 kg

DRUGS (2)
  1. CHANTIX [Suspect]
     Indication: SMOKING CESSATION THERAPY
     Dosage: 0.5 MG, DAILY
     Dates: start: 20050101, end: 20050101
  2. CHANTIX [Suspect]
     Dosage: UNK
     Dates: start: 20050101, end: 20050101

REACTIONS (2)
  - ABNORMAL DREAMS [None]
  - CONSTIPATION [None]
